FAERS Safety Report 14831420 (Version 2)
Quarter: 2018Q2

REPORT INFORMATION
  Report Type: Spontaneous
  Country: US (occurrence: US)
  Receive Date: 20180501
  Receipt Date: 20180507
  Transmission Date: 20180711
  Serious: Yes (Other)
  Sender: FDA-Public Use
  Company Number: US-AMGEN-USASP2018038362

PATIENT
  Age: 77 Year
  Sex: Male
  Weight: 66.21 kg

DRUGS (2)
  1. TAXOL [Concomitant]
     Active Substance: PACLITAXEL
     Indication: PROSTATE CANCER
     Dosage: 50 MG/M2, QWK
     Dates: start: 20171125, end: 20180314
  2. NEULASTA [Suspect]
     Active Substance: PEGFILGRASTIM
     Indication: NEUTROPENIA
     Dosage: 6 MG, UNK
     Route: 058

REACTIONS (4)
  - Neutropenia [Recovered/Resolved]
  - Drug dose omission [Unknown]
  - Unintentional medical device removal [Unknown]
  - Incorrect route of drug administration [Unknown]

NARRATIVE: CASE EVENT DATE: 201803
